FAERS Safety Report 8512689-6 (Version None)
Quarter: 2012Q3

REPORT INFORMATION
  Report Type: 
  Country: None (occurrence: None)
  Receive Date: 20120716
  Receipt Date: 20120712
  Transmission Date: 20120928
  Serious: Yes (Other)
  Sender: FDA-Public Use
  Company Number: IL-PFIZER INC-2012159987

PATIENT
  Age: 63 Year
  Sex: Female

DRUGS (3)
  1. LYRICA [Suspect]
     Indication: NEURALGIA
     Dosage: 300 MG, 2X/DAY (2 CAPSULES OF 150MG)
     Route: 048
  2. BONDORMIN [Concomitant]
     Dosage: 10 PILLS A DAY
  3. CODEINE [Concomitant]
     Dosage: UNK

REACTIONS (2)
  - OSTEOPOROSIS [None]
  - ABDOMINAL DISTENSION [None]
